FAERS Safety Report 4689814-0 (Version None)
Quarter: 2005Q2

REPORT INFORMATION
  Report Type: 
  Country: None (occurrence: None)
  Receive Date: 20050608
  Receipt Date: 20050412
  Transmission Date: 20051028
  Serious: No
  Sender: FDA-Public Use
  Company Number: 2005-BP-06041BP

PATIENT
  Age: 59 Year
  Sex: Male

DRUGS (7)
  1. SPIRIVA [Suspect]
     Indication: ASTHMA
     Dosage: 18 MCG (18 MCG, QD), IH
     Route: 055
     Dates: start: 20041001
  2. SPIRIVA [Suspect]
     Indication: BRONCHITIS
  3. ADVAIR DISKUS 100/50 [Concomitant]
  4. MOBIC [Concomitant]
  5. ZOCOR(SMVASTATIN) [Concomitant]
  6. TRICOR [Concomitant]
  7. SINGULAIR [Concomitant]

REACTIONS (1)
  - AGEUSIA [None]
